FAERS Safety Report 8560523-0 (Version None)
Quarter: 2012Q3

REPORT INFORMATION
  Report Type: 
  Country: None (occurrence: None)
  Receive Date: 20120802
  Receipt Date: 20100510
  Transmission Date: 20120928
  Serious: Yes (Other)
  Sender: FDA-Public Use
  Company Number: CO-PFIZER INC-2012184260

PATIENT
  Age: 63 Year
  Sex: Male

DRUGS (2)
  1. GEMFIBROZIL [Concomitant]
     Dosage: 600 MG, 2X/DAY
     Route: 048
  2. LIPITOR [Suspect]
     Dosage: 10 MG, 1X/DAY
     Route: 048

REACTIONS (1)
  - HYPERTENSIVE EMERGENCY [None]
